FAERS Safety Report 10510666 (Version 1)
Quarter: 2014Q3

REPORT INFORMATION
  Report Type: Spontaneous
  Country: US (occurrence: None)
  Receive Date: 20140915
  Receipt Date: 20140915
  Transmission Date: 20150326
  Serious: Yes (Other)
  Sender: FDA-Public Use
  Company Number: 2013-US-002272

PATIENT
  Age: 67 Year
  Sex: Female

DRUGS (9)
  1. NORVASC [Concomitant]
     Active Substance: AMLODIPINE BESYLATE
  2. XYREM [Suspect]
     Active Substance: SODIUM OXYBATE
     Indication: NARCOLEPSY
     Route: 048
     Dates: start: 200402, end: 2004
  3. SYNTHROID [Concomitant]
     Active Substance: LEVOTHYROXINE SODIUM
  4. ZESTRIL (LISINOPRIL) [Concomitant]
  5. LOPRESSOR [Concomitant]
     Active Substance: METOPROLOL TARTRATE
  6. CATAPRES (CLONIDINE) [Concomitant]
  7. FISH OIL (FISH OIL) [Concomitant]
     Active Substance: FISH OIL
  8. CALTRATE [Concomitant]
     Active Substance: CALCIUM CARBONATE
  9. KCI (KCI) [Concomitant]

REACTIONS (4)
  - Drug dose omission [None]
  - Insomnia [None]
  - Hypotension [None]
  - Blood pressure increased [None]

NARRATIVE: CASE EVENT DATE: 20131015
